FAERS Safety Report 24441742 (Version 2)
Quarter: 2024Q4

REPORT INFORMATION
  Report Type: Report from Study
  Country: GR (occurrence: GR)
  Receive Date: 20241016
  Receipt Date: 20241017
  Transmission Date: 20250115
  Serious: No
  Sender: ROCHE
  Company Number: GR-ROCHE-3508741

PATIENT

DRUGS (1)
  1. EMICIZUMAB [Suspect]
     Active Substance: EMICIZUMAB
     Indication: Factor VIII deficiency
     Route: 065

REACTIONS (2)
  - Injection site reaction [Unknown]
  - Headache [Unknown]
